FAERS Safety Report 14013946 (Version 3)
Quarter: 2017Q4

REPORT INFORMATION
  Report Type: Spontaneous
  Country: BR (occurrence: BR)
  Receive Date: 20170926
  Receipt Date: 20171008
  Transmission Date: 20180321
  Serious: Yes (Other)
  Sender: FDA-Public Use
  Company Number: BR-BEH-2017083717

PATIENT
  Age: 60 Year
  Sex: Female

DRUGS (3)
  1. LOSARTANA POTASSICA [Concomitant]
     Active Substance: LOSARTAN
     Route: 065
  2. PRIVIGEN [Suspect]
     Active Substance: HUMAN IMMUNOGLOBULIN G
     Indication: CHRONIC INFLAMMATORY DEMYELINATING POLYRADICULONEUROPATHY
     Dosage: 25 G, TOT; 107ML/H
     Route: 042
     Dates: start: 20170802, end: 20170802
  3. CAPTOPRIL. [Concomitant]
     Active Substance: CAPTOPRIL
     Route: 065

REACTIONS (7)
  - Emotional disorder [Unknown]
  - Malaise [Recovered/Resolved]
  - Myalgia [Recovered/Resolved]
  - Hypertension [Unknown]
  - Headache [Recovered/Resolved]
  - Pyrexia [Recovered/Resolved]
  - Urinary tract infection [Recovered/Resolved]

NARRATIVE: CASE EVENT DATE: 20170802
